FAERS Safety Report 19433107 (Version 2)
Quarter: 2021Q3

REPORT INFORMATION
  Report Type: Report from Study
  Country: US (occurrence: US)
  Receive Date: 20210617
  Receipt Date: 20210825
  Transmission Date: 20211014
  Serious: Yes (Hospitalization)
  Sender: FDA-Public Use
  Company Number: NVSC2021US130510

PATIENT
  Sex: Female

DRUGS (2)
  1. ENTRESTO [Suspect]
     Active Substance: SACUBITRIL\VALSARTAN
     Dosage: UNK
     Route: 048
     Dates: start: 202102
  2. ENTRESTO [Suspect]
     Active Substance: SACUBITRIL\VALSARTAN
     Indication: PRODUCT USED FOR UNKNOWN INDICATION
     Dosage: UNK
     Route: 048

REACTIONS (8)
  - Dyspnoea [Unknown]
  - Fatigue [Recovering/Resolving]
  - Blood pressure decreased [Not Recovered/Not Resolved]
  - Tremor [Unknown]
  - Weight decreased [Unknown]
  - Weight increased [Unknown]
  - Bronchitis [Recovering/Resolving]
  - COVID-19 [Unknown]
